FAERS Safety Report 7959836-2 (Version None)
Quarter: 2011Q4

REPORT INFORMATION
  Report Type: 
  Country: None (occurrence: None)
  Receive Date: 20111206
  Receipt Date: 20111202
  Transmission Date: 20120403
  Serious: Yes (Other)
  Sender: FDA-Public Use
  Company Number: JP-PFIZER INC-2011265138

PATIENT
  Age: 78 Year
  Sex: Male
  Weight: 58 kg

DRUGS (13)
  1. EPLERENONE [Suspect]
     Indication: HYPERTENSION
     Dosage: 25 MG, DAILY
     Route: 048
     Dates: start: 20111001, end: 20111001
  2. EPLERENONE [Suspect]
     Dosage: 12.5 MG/DAY
     Route: 048
     Dates: start: 20111001, end: 20111001
  3. ACECOL [Concomitant]
     Dosage: 2 MG, 1X/DAY
     Dates: end: 20111001
  4. ALLOPURINOL [Concomitant]
     Dosage: 200 MG, 2X/DAY
  5. CARVEDILOL [Concomitant]
     Dosage: UNK
     Dates: end: 20110901
  6. DIOVAN [Concomitant]
     Indication: HYPERTENSION
     Dosage: 80 MG, 1X/DAY
     Route: 048
     Dates: end: 20111001
  7. ACECOL [Concomitant]
     Dosage: 2 MG, 1X/DAY
     Dates: start: 20111001, end: 20111001
  8. PERINDOPRIL ERBUMINE [Concomitant]
     Indication: HYPERTENSION
     Dosage: 8 MG/DAY
     Route: 048
     Dates: start: 20111001, end: 20111001
  9. NORVASC [Concomitant]
     Dosage: 5 MG, 1X/DAY
  10. TAMSULOSIN HCL [Concomitant]
     Dosage: 0.2 MG, 1X/DAY
  11. PERINDOPRIL ERBUMINE [Concomitant]
     Dosage: 4 MG/DAY
     Dates: start: 20111001, end: 20111001
  12. CARVEDILOL [Concomitant]
     Dosage: 2.5 MG/DAY
     Dates: start: 20111001, end: 20111001
  13. CARVEDILOL [Concomitant]
     Dosage: 3.75 MG/DAY
     Dates: start: 20111001

REACTIONS (3)
  - HYPERKALAEMIA [None]
  - RENAL TUBULAR ACIDOSIS [None]
  - RASH [None]
